FAERS Safety Report 10515214 (Version 1)
Quarter: 2014Q4

REPORT INFORMATION
  Report Type: Spontaneous
  Country: US (occurrence: US)
  Receive Date: 20141014
  Receipt Date: 20141014
  Transmission Date: 20150528
  Serious: Yes (Hospitalization)
  Sender: FDA-Public Use
  Company Number: US-UNITED THERAPEUTICS-UNT-2014-008922

PATIENT
  Sex: Female
  Weight: 49.89 kg

DRUGS (1)
  1. REMODULIN [Suspect]
     Active Substance: TREPROSTINIL
     Indication: COR PULMONALE CHRONIC
     Dosage: 0.230 ?G/KG, CONTINUING
     Route: 041
     Dates: start: 20120128

REACTIONS (6)
  - Pyrexia [Unknown]
  - Drug dose omission [Unknown]
  - Haemoptysis [Unknown]
  - Chills [Unknown]
  - Pain [Unknown]
  - Abdominal pain upper [Unknown]

NARRATIVE: CASE EVENT DATE: 2014
